FAERS Safety Report 15831197 (Version 1)
Quarter: 2019Q1

REPORT INFORMATION
  Report Type: Spontaneous
  Country: US (occurrence: US)
  Receive Date: 20190114
  Receipt Date: 20190114
  Transmission Date: 20190417
  Serious: No
  Sender: FDA-Public Use
  Company Number: None

PATIENT
  Age: 28 Year
  Sex: Female
  Weight: 72.12 kg

DRUGS (1)
  1. CLONAZEPAM. [Suspect]
     Active Substance: CLONAZEPAM
     Indication: ANXIETY
     Dates: start: 20181010, end: 20181018

REACTIONS (5)
  - Pain of skin [None]
  - Pruritus [None]
  - Urticaria [None]
  - Rash [None]
  - Skin mass [None]

NARRATIVE: CASE EVENT DATE: 20181017
